FAERS Safety Report 7384861-2 (Version None)
Quarter: 2011Q1

REPORT INFORMATION
  Report Type: 
  Country: None (occurrence: None)
  Receive Date: 20110322
  Receipt Date: 20110307
  Transmission Date: 20110831
  Serious: Yes (Life-Threatening, Hospitalization)
  Sender: FDA-Public Use
  Company Number: TCI2011A00797

PATIENT
  Age: 41 Year
  Sex: Female

DRUGS (8)
  1. TAKEPRON OD TABLETS [Suspect]
     Indication: REFLUX OESOPHAGITIS
     Dosage: 30 (LANSOPRAZOLE),30 MG 930 MG, 1 IN 1 D) PER ORAL
     Route: 048
     Dates: start: 20101224
  2. TAKEPRON OD TABLETS [Suspect]
     Indication: REFLUX OESOPHAGITIS
     Dosage: 30 (LANSOPRAZOLE),30 MG 930 MG, 1 IN 1 D) PER ORAL
     Route: 048
     Dates: start: 20101224, end: 20110123
  3. ASPIRIN [Suspect]
     Indication: REVERSIBLE ISCHAEMIC NEUROLOGICAL DEFICIT
     Dosage: PER ORAL
     Route: 048
     Dates: start: 20110111, end: 20110123
  4. PREDNISOLONE [Concomitant]
  5. FOSAMAX [Suspect]
     Indication: OSTEOPOROSIS PROPHYLAXIS
     Dosage: 35 MG (35 MF, 1 IN 1 WK), PER ORAL
     Route: 048
     Dates: start: 20101224, end: 20110125
  6. BENAMBAX (PENTAMIDINE) [Suspect]
     Indication: ANTIFUNGAL PROPHYLAXIS
     Dosage: 1 IN 1 D, RESPIRATORY INHALATION
     Route: 055
     Dates: start: 20101228
  7. LIPITOR [Suspect]
     Indication: HYPERLIPIDAEMIA
     Dosage: 10 MG (10 MG, 1 IN 1 D), PER ORAL
     Route: 048
     Dates: start: 20101228, end: 20110123
  8. FUNGIZONE [Concomitant]

REACTIONS (6)
  - CELLULITIS GANGRENOUS [None]
  - HYPERLIPIDAEMIA [None]
  - AGRANULOCYTOSIS [None]
  - SEPSIS [None]
  - SKIN ULCER [None]
  - TRANSIENT ISCHAEMIC ATTACK [None]
